FAERS Safety Report 4993248-9 (Version None)
Quarter: 2006Q1

REPORT INFORMATION
  Report Type: 
  Country: None (occurrence: None)
  Receive Date: 20060314
  Receipt Date: 20050120
  Transmission Date: 20060701
  Serious: Yes (Other)
  Sender: FDA-Public Use
  Company Number: 200510303BCC

PATIENT
  Sex: Female

DRUGS (5)
  1. ALEVE [Suspect]
     Indication: ARTHRALGIA
     Dates: start: 20010101, end: 20041101
  2. ALEVE [Suspect]
     Indication: OSTEOPENIA
     Dates: start: 20010101, end: 20041101
  3. OS-CAL 500 + D [Suspect]
     Indication: MINERAL SUPPLEMENTATION
     Dosage: 500 MG, ORAL
     Route: 048
     Dates: start: 19900101
  4. ASPERCREME [Concomitant]
  5. GLUCOSAMINE/CHONDROITIN [Concomitant]

REACTIONS (4)
  - ARTHRALGIA [None]
  - HAEMATOCHEZIA [None]
  - OSTEOPOROSIS [None]
  - RECTAL HAEMORRHAGE [None]
